FAERS Safety Report 22659273 (Version 5)
Quarter: 2023Q4

REPORT INFORMATION
  Report Type: Spontaneous
  Country: US (occurrence: US)
  Receive Date: 20230630
  Receipt Date: 20231212
  Transmission Date: 20240110
  Serious: Yes (Other)
  Sender: FDA-Public Use
  Company Number: US-BRISTOL-MYERS SQUIBB COMPANY-2023-091130

PATIENT
  Age: 78 Year
  Sex: Male

DRUGS (2)
  1. POMALYST [Suspect]
     Active Substance: POMALIDOMIDE
     Indication: Plasma cell myeloma
     Dosage: 21 DAYS FOLLOWED BY A 7 DAY REST
     Route: 048
     Dates: start: 20161108, end: 20230618
  2. POMALYST [Suspect]
     Active Substance: POMALIDOMIDE
     Dosage: TAKE 1 CAPSULE BY MOUTH ONCE DAILY FOR 21 DAYS ON FOLLOWED BY 7 DAYS REST PERIOD
     Route: 048
     Dates: end: 20230618

REACTIONS (5)
  - Neuropathy peripheral [Recovering/Resolving]
  - Thrombosis [Recovered/Resolved]
  - Upper respiratory tract infection [Recovering/Resolving]
  - Vein disorder [Recovered/Resolved]
  - Upper gastrointestinal haemorrhage [Not Recovered/Not Resolved]
